FAERS Safety Report 6997554-8 (Version None)
Quarter: 2010Q3

REPORT INFORMATION
  Report Type: 
  Country: None (occurrence: None)
  Receive Date: 20100918
  Receipt Date: 20091007
  Transmission Date: 20110219
  Serious: No
  Sender: FDA-Public Use
  Company Number: US-WYE-H11922609

PATIENT
  Sex: Male

DRUGS (3)
  1. PRISTIQ [Suspect]
     Indication: DEPRESSION
     Dosage: 50 TO 100 MG DAILY
     Route: 048
  2. PRISTIQ [Interacting]
     Indication: ANXIETY
  3. SUBUTEX [Interacting]
     Dosage: UNKNOWN

REACTIONS (3)
  - DRUG INTERACTION [None]
  - URINARY HESITATION [None]
  - URINARY RETENTION [None]
